FAERS Safety Report 8350357-4 (Version None)
Quarter: 2012Q2

REPORT INFORMATION
  Report Type: 
  Country: None (occurrence: None)
  Receive Date: 20120510
  Receipt Date: 20120426
  Transmission Date: 20120825
  Serious: Yes (Death, Other)
  Sender: FDA-Public Use
  Company Number: GR-ROCHE-722891

PATIENT

DRUGS (5)
  1. DEXAMETHASONE AND DEXAMETHASONE [Suspect]
     Indication: WALDENSTROM'S MACROGLOBULINAEMIA
     Route: 042
  2. BORTEZOMIB [Suspect]
     Dosage: ON DAYS 1, 8, 15 AND 22
     Route: 042
  3. MABTHERA [Suspect]
     Indication: WALDENSTROM'S MACROGLOBULINAEMIA
     Dosage: IN TOTAL 8 INFUSION WERE GIVEN.
     Route: 042
  4. BORTEZOMIB [Suspect]
     Indication: WALDENSTROM'S MACROGLOBULINAEMIA
     Dosage: ON DAYS 1,4,8 AND 11
     Route: 042
  5. VALACYCLOVIR HYDROCHLORIDE [Concomitant]
     Indication: ANTIVIRAL PROPHYLAXIS

REACTIONS (12)
  - LUNG INFILTRATION [None]
  - NEURALGIA [None]
  - HERPES ZOSTER [None]
  - GASTROINTESTINAL TOXICITY [None]
  - DYSPNOEA [None]
  - OXYGEN SATURATION DECREASED [None]
  - DEATH [None]
  - INFECTION [None]
  - NEUTROPENIA [None]
  - THROMBOCYTOPENIA [None]
  - NEUROPATHY PERIPHERAL [None]
  - SEPTIC SHOCK [None]
